FAERS Safety Report 7043898-3 (Version None)
Quarter: 2010Q4

REPORT INFORMATION
  Report Type: 
  Country: None (occurrence: None)
  Receive Date: 20101012
  Receipt Date: 20101012
  Transmission Date: 20110411
  Serious: Yes (Other)
  Sender: FDA-Public Use
  Company Number: None

PATIENT
  Age: 55 Year
  Sex: Male
  Weight: 91.6266 kg

DRUGS (1)
  1. ADVAIR DISKUS 500/50 [Suspect]
     Indication: ASTHMA
     Dosage: 1 PUFF 2X/DAY PO
     Route: 048
     Dates: start: 20060101, end: 20091231

REACTIONS (4)
  - BONE DENSITY DECREASED [None]
  - CATARACT [None]
  - MACULAR DEGENERATION [None]
  - OSTEOPENIA [None]
